APPROVED DRUG PRODUCT: MAGNESIUM HYDROXIDE AND OMEPRAZOLE AND SODIUM BICARBONATE
Active Ingredient: MAGNESIUM HYDROXIDE; OMEPRAZOLE; SODIUM BICARBONATE
Strength: 343MG;20MG;750MG
Dosage Form/Route: TABLET;ORAL
Application: N022456 | Product #001
Applicant: SANTARUS INC
Approved: Dec 4, 2009 | RLD: No | RS: No | Type: DISCN